FAERS Safety Report 21034177 (Version 10)
Quarter: 2022Q4

REPORT INFORMATION
  Report Type: Spontaneous
  Country: US (occurrence: US)
  Receive Date: 20220701
  Receipt Date: 20221128
  Transmission Date: 20230113
  Serious: Yes (Other)
  Sender: FDA-Public Use
  Company Number: US-PFIZER INC-PV202200011780

PATIENT
  Age: 38 Year
  Sex: Female

DRUGS (3)
  1. IBRANCE [Suspect]
     Active Substance: PALBOCICLIB
     Dosage: UNK
     Dates: start: 20220627
  2. IBRANCE [Suspect]
     Active Substance: PALBOCICLIB
     Dosage: 125 MG
  3. IBRANCE [Suspect]
     Active Substance: PALBOCICLIB
     Dosage: 100 MG
     Dates: start: 20220807

REACTIONS (13)
  - Neuropathy peripheral [Not Recovered/Not Resolved]
  - Product dose omission in error [Unknown]
  - Peripheral swelling [Not Recovered/Not Resolved]
  - Dizziness [Recovered/Resolved]
  - Stomatitis [Recovered/Resolved]
  - Constipation [Unknown]
  - White blood cell count decreased [Unknown]
  - Red blood cell count decreased [Unknown]
  - Fatigue [Recovered/Resolved]
  - Sleep disorder [Unknown]
  - Full blood count abnormal [Unknown]
  - Pain in extremity [Unknown]
  - Stomatitis [Unknown]

NARRATIVE: CASE EVENT DATE: 20220601
